FAERS Safety Report 25641813 (Version 3)
Quarter: 2025Q3

REPORT INFORMATION
  Report Type: Report from Study
  Country: US (occurrence: US)
  Receive Date: 20250804
  Receipt Date: 20250912
  Transmission Date: 20251021
  Serious: Yes (Hospitalization, Other)
  Sender: ABBVIE
  Company Number: US-ABBVIE-6331363

PATIENT
  Age: 62 Year
  Sex: Female
  Weight: 90 kg

DRUGS (3)
  1. HUMIRA [Suspect]
     Active Substance: ADALIMUMAB
     Indication: Rheumatoid arthritis
     Dosage: FORM STRENGTH: 40 MILLIGRAM ?CITRATE FREE
     Route: 058
     Dates: start: 20250408, end: 202506
  2. HUMIRA [Suspect]
     Active Substance: ADALIMUMAB
     Dosage: FORM STRENGTH: 40 MILLIGRAM
     Route: 058
     Dates: start: 202507
  3. HYDROXYCHLOROQUINE [Concomitant]
     Active Substance: HYDROXYCHLOROQUINE
     Indication: Product used for unknown indication

REACTIONS (17)
  - Animal scratch [Unknown]
  - Erythema [Unknown]
  - Emotional disorder [Recovering/Resolving]
  - Infection susceptibility increased [Unknown]
  - Renal disorder [Recovering/Resolving]
  - Localised infection [Unknown]
  - Vein rupture [Unknown]
  - Liver injury [Not Recovered/Not Resolved]
  - Dehydration [Unknown]
  - General physical health deterioration [Recovering/Resolving]
  - Wound infection staphylococcal [Unknown]
  - Pain [Recovered/Resolved]
  - Blood pressure measurement [Unknown]
  - Withdrawal syndrome [Unknown]
  - Gastrooesophageal reflux disease [Unknown]
  - Tremor [Unknown]
  - Glomerular filtration rate abnormal [Recovering/Resolving]

NARRATIVE: CASE EVENT DATE: 20250101
